FAERS Safety Report 10998026 (Version 2)
Quarter: 2015Q2

REPORT INFORMATION
  Report Type: Spontaneous
  Country: JP (occurrence: JP)
  Receive Date: 20150408
  Receipt Date: 20150424
  Transmission Date: 20150821
  Serious: Yes (Death)
  Sender: FDA-Public Use
  Company Number: JP-CELGENE-JPN-2015040672

PATIENT
  Age: 70 Year
  Sex: Male

DRUGS (16)
  1. WARFARIN [Concomitant]
     Active Substance: WARFARIN
     Indication: CARDIAC VALVE DISEASE
     Route: 048
     Dates: start: 20130912, end: 20150402
  2. NEXIUM [Concomitant]
     Active Substance: ESOMEPRAZOLE MAGNESIUM
     Indication: AORTIC VALVE STENOSIS
     Route: 048
     Dates: start: 20130912, end: 20150402
  3. ABRAXANE [Suspect]
     Active Substance: PACLITAXEL
     Indication: PANCREATIC CARCINOMA METASTATIC
     Route: 065
     Dates: start: 20150319, end: 20150326
  4. MIYA-BM [Concomitant]
     Active Substance: CLOSTRIDIUM BUTYRICUM SPORES STRAIN M-55
     Indication: INTESTINAL OBSTRUCTION
     Route: 048
     Dates: start: 20150210, end: 20150402
  5. MAGMITT [Concomitant]
     Active Substance: MAGNESIUM OXIDE
     Indication: INTESTINAL OBSTRUCTION
     Route: 048
     Dates: start: 20150210, end: 20150402
  6. BAYASPIRIN [Concomitant]
     Active Substance: ASPIRIN
     Indication: AORTIC VALVE STENOSIS
     Route: 048
     Dates: start: 20130912, end: 20150402
  7. MAINTATE [Concomitant]
     Active Substance: BISOPROLOL FUMARATE
     Indication: ATRIAL FIBRILLATION
  8. DAIKENCHUTO [Concomitant]
     Active Substance: HERBALS
     Indication: INTESTINAL OBSTRUCTION
     Dosage: 3 DOSAGE FORM
     Route: 048
     Dates: start: 20150210, end: 20150402
  9. FLUITRAN [Concomitant]
     Active Substance: TRICHLORMETHIAZIDE
     Indication: PLEURAL EFFUSION
     Dosage: 3 DOSAGE FORM
     Route: 048
     Dates: start: 20150226, end: 20150402
  10. GEMCITABINE [Concomitant]
     Active Substance: GEMCITABINE\GEMCITABINE HYDROCHLORIDE
     Indication: PANCREATIC CARCINOMA
     Route: 065
     Dates: start: 20150319, end: 20150326
  11. NEXIUM [Concomitant]
     Active Substance: ESOMEPRAZOLE MAGNESIUM
     Indication: ATRIAL FIBRILLATION
  12. LASIX [Concomitant]
     Active Substance: FUROSEMIDE
     Indication: ATRIAL FIBRILLATION
  13. MAINTATE [Concomitant]
     Active Substance: BISOPROLOL FUMARATE
     Indication: AORTIC VALVE STENOSIS
     Route: 048
     Dates: start: 20130912, end: 20150402
  14. LASIX [Concomitant]
     Active Substance: FUROSEMIDE
     Indication: AORTIC VALVE STENOSIS
     Route: 048
     Dates: start: 20130912, end: 20150402
  15. FLUITRAN [Concomitant]
     Active Substance: TRICHLORMETHIAZIDE
     Indication: ATRIAL FIBRILLATION
  16. BAYASPIRIN [Concomitant]
     Active Substance: ASPIRIN
     Indication: ATRIAL FIBRILLATION

REACTIONS (2)
  - Pancreatic carcinoma metastatic [Fatal]
  - Cardio-respiratory arrest [Fatal]

NARRATIVE: CASE EVENT DATE: 20150402
